FAERS Safety Report 9850290 (Version 1)
Quarter: 2014Q1

REPORT INFORMATION
  Report Type: Spontaneous
  Country: JP (occurrence: JP)
  Receive Date: 20140128
  Receipt Date: 20140128
  Transmission Date: 20141002
  Serious: Yes (Other)
  Sender: FDA-Public Use
  Company Number: JP-GLAXOSMITHKLINE-B0963157A

PATIENT
  Sex: Female

DRUGS (1)
  1. RELVAR ELLIPTA (FLUTICASONE FUROATE/VILANTEROL) [Suspect]
     Indication: PRODUCT USED FOR UNKNOWN INDICATION
     Route: 055

REACTIONS (2)
  - Pneumonia [Recovered/Resolved]
  - Pyrexia [Unknown]
